FAERS Safety Report 14909168 (Version 1)
Quarter: 2018Q2

REPORT INFORMATION
  Report Type: Spontaneous
  Country: US (occurrence: US)
  Receive Date: 20180517
  Receipt Date: 20180517
  Transmission Date: 20180711
  Serious: No
  Sender: FDA-Public Use
  Company Number: US-PFIZER INC-2018200630

PATIENT
  Age: 6 Decade
  Sex: Male

DRUGS (1)
  1. GABAPENTIN. [Suspect]
     Active Substance: GABAPENTIN
     Indication: NEUROPATHY PERIPHERAL
     Dosage: 300 MG, THREE TIMES DAILY (EVERY 8 HOURS)

REACTIONS (4)
  - Mobility decreased [Unknown]
  - Gait inability [Unknown]
  - Product use in unapproved indication [Unknown]
  - Hypersomnia [Recovered/Resolved]
